FAERS Safety Report 7905726-0 (Version None)
Quarter: 2011Q4

REPORT INFORMATION
  Report Type: 
  Country: None (occurrence: None)
  Receive Date: 20111108
  Receipt Date: 20111025
  Transmission Date: 20120403
  Serious: Yes (Other)
  Sender: FDA-Public Use
  Company Number: 2011MA002363

PATIENT
  Age: 61 Year
  Sex: Female

DRUGS (13)
  1. DILTIAZEM HYDROCHLORIDE [Suspect]
     Dosage: ;PO
     Route: 048
  2. DILTIAZEM [Suspect]
     Dosage: ;PO
     Route: 048
     Dates: start: 20101006, end: 20101104
  3. BISOPROLOL FUMARATE [Suspect]
     Dates: start: 20101001, end: 20101006
  4. MEBEVERINE [Concomitant]
  5. LOSARTAN [Concomitant]
  6. BENDROFLUMETHIAZIDE [Concomitant]
  7. INDAPAMIDE [Concomitant]
  8. HERBAL MEDICATION [Concomitant]
  9. RAMIPRIL [Suspect]
     Indication: BLOOD PRESSURE INCREASED
     Dosage: 2.5 MG;
     Dates: start: 20101118
  10. SIMVASTATIN [Concomitant]
  11. SOTALOL HCL [Concomitant]
  12. ASPIRIN [Concomitant]
  13. DANDELION [Concomitant]

REACTIONS (10)
  - BLOOD PRESSURE INCREASED [None]
  - HYPOAESTHESIA [None]
  - DIZZINESS POSTURAL [None]
  - MIGRAINE WITH AURA [None]
  - VISION BLURRED [None]
  - DRUG INTOLERANCE [None]
  - VISUAL IMPAIRMENT [None]
  - NAUSEA [None]
  - VERTIGO [None]
  - REACTION TO DRUG EXCIPIENTS [None]
